FAERS Safety Report 24120336 (Version 2)
Quarter: 2024Q3

REPORT INFORMATION
  Report Type: Spontaneous
  Country: US (occurrence: US)
  Receive Date: 20240722
  Receipt Date: 20240723
  Transmission Date: 20241016
  Serious: Yes (Hospitalization, Other)
  Sender: JOHNSON AND JOHNSON
  Company Number: US-JNJFOC-20240749676

PATIENT
  Age: 6 Decade
  Sex: Male
  Weight: 71.3 kg

DRUGS (1)
  1. TALQUETAMAB [Suspect]
     Active Substance: TALQUETAMAB
     Indication: Plasma cell myeloma
     Dosage: LAST DOSE OF TALQUETAMAB ON 6-MAY-2024 PRIOR TO APHERESIS?L21
     Route: 065
     Dates: start: 20231215

REACTIONS (5)
  - Mucosal inflammation [Unknown]
  - Pain [Unknown]
  - Plasma cell myeloma [Unknown]
  - Anaemia [Unknown]
  - Lymphocyte count decreased [Unknown]
